FAERS Safety Report 12241520 (Version 1)
Quarter: 2016Q2

REPORT INFORMATION
  Report Type: Spontaneous
  Country: US (occurrence: None)
  Receive Date: 20160405
  Receipt Date: 20160405
  Transmission Date: 20160815
  Serious: No
  Sender: FDA-Public Use
  Company Number: None

PATIENT
  Sex: Male

DRUGS (2)
  1. HUMIRA [Suspect]
     Active Substance: ADALIMUMAB
     Indication: MALABSORPTION
     Dosage: 40MG EVERY 14 DAYS SUBQ?
     Route: 058
     Dates: start: 20140629, end: 20160331
  2. HUMIRA [Suspect]
     Active Substance: ADALIMUMAB
     Indication: COLITIS ULCERATIVE
     Dosage: 40MG EVERY 14 DAYS SUBQ?
     Route: 058
     Dates: start: 20140629, end: 20160331

REACTIONS (2)
  - Unevaluable event [None]
  - Therapy cessation [None]
